FAERS Safety Report 6376673-3 (Version None)
Quarter: 2009Q3

REPORT INFORMATION
  Report Type: 
  Country: None (occurrence: None)
  Receive Date: 20090921
  Receipt Date: 20090908
  Transmission Date: 20100115
  Serious: Yes (Other)
  Sender: FDA-Public Use
  Company Number: WAES 0909DNK00007

PATIENT
  Age: 61 Year
  Sex: Male

DRUGS (5)
  1. CAP VORINOSTAT [Suspect]
     Indication: POLYCYTHAEMIA VERA
     Dosage: 400 MG/DAILY
     Route: 048
     Dates: start: 20090629, end: 20090806
  2. ALFUZOSIN HCL [Suspect]
     Indication: BENIGN PROSTATIC HYPERPLASIA
     Dosage: 10 MG/DAILY
     Route: 048
     Dates: start: 20080204, end: 20090717
  3. ASPIRIN [Concomitant]
  4. GLUCOSAMINE [Concomitant]
  5. IBUPROFEN [Concomitant]

REACTIONS (1)
  - PALPITATIONS [None]
